FAERS Safety Report 9970812 (Version 1)
Quarter: 2014Q1

REPORT INFORMATION
  Report Type: Report from Study
  Country: US (occurrence: US)
  Receive Date: 20140306
  Receipt Date: 20140306
  Transmission Date: 20141002
  Serious: No
  Sender: FDA-Public Use
  Company Number: US-ABBVIE-13P-163-1150728-00

PATIENT
  Age: 41 Year
  Sex: Female

DRUGS (6)
  1. HUMIRA [Suspect]
     Indication: SARCOIDOSIS
     Dosage: WEEKLY
     Dates: start: 201305
  2. METOPROLOL [Concomitant]
     Indication: HYPERTENSION
     Dosage: 50MG DAILY
  3. PLAQUENIL [Concomitant]
     Indication: SARCOIDOSIS
     Dosage: 2 TABLETS DAILY
  4. PREDNISONE [Concomitant]
     Indication: SARCOIDOSIS
     Dosage: 5MG DAILY
  5. OMEPRAZOLE [Concomitant]
     Indication: PRODUCT USED FOR UNKNOWN INDICATION
     Dosage: 20MG DAILY BEACUSE ON PREDNISONE
  6. MULTIVITAMIN [Concomitant]
     Indication: VITAMIN SUPPLEMENTATION
     Dosage: DAILY

REACTIONS (4)
  - Off label use [Not Recovered/Not Resolved]
  - Injection site papule [Not Recovered/Not Resolved]
  - Injection site pain [Not Recovered/Not Resolved]
  - Injection site erythema [Not Recovered/Not Resolved]
